FAERS Safety Report 9455608 (Version 1)
Quarter: 2013Q3

REPORT INFORMATION
  Report Type: Spontaneous
  Country: US (occurrence: US)
  Receive Date: 20130813
  Receipt Date: 20130813
  Transmission Date: 20140515
  Serious: Yes (Other)
  Sender: FDA-Public Use
  Company Number: US-PFIZER INC-2013233220

PATIENT
  Sex: Male

DRUGS (4)
  1. ADVIL [Suspect]
     Dosage: 200 MG, UNK
     Route: 048
  2. ADVIL [Suspect]
     Dosage: 800 MG (FOUR, 200MG CAPSULES AT A TIME), UNK
     Route: 048
  3. ADVIL [Suspect]
     Dosage: 200 MG, UNK
     Route: 048
  4. ADVIL [Suspect]
     Dosage: UNK (FOUR TO FIVE TABLETS IN HALF AN HOUR)
     Route: 048

REACTIONS (4)
  - Angina pectoris [Unknown]
  - Somnolence [Unknown]
  - Chest pain [Unknown]
  - Intentional drug misuse [Unknown]
